FAERS Safety Report 10599859 (Version 2)
Quarter: 2014Q4

REPORT INFORMATION
  Report Type: Spontaneous
  Country: JP (occurrence: JP)
  Receive Date: 20141121
  Receipt Date: 20141121
  Transmission Date: 20150529
  Serious: Yes (Hospitalization)
  Sender: FDA-Public Use
  Company Number: PHHY2011JP122072

PATIENT
  Age: 70 Year
  Sex: Male

DRUGS (2)
  1. TASIGNA [Suspect]
     Active Substance: NILOTINIB
     Indication: CHRONIC MYELOID LEUKAEMIA
     Route: 065
     Dates: start: 20111025
  2. TASIGNA [Suspect]
     Active Substance: NILOTINIB
     Dosage: 600 MG, UNK
     Route: 065

REACTIONS (2)
  - Second primary malignancy [Recovered/Resolved]
  - Gastric cancer [Recovered/Resolved]

NARRATIVE: CASE EVENT DATE: 201212
